FAERS Safety Report 18627285 (Version 6)
Quarter: 2021Q4

REPORT INFORMATION
  Report Type: Spontaneous
  Country: JP (occurrence: JP)
  Receive Date: 20201217
  Receipt Date: 20211021
  Transmission Date: 20220303
  Serious: Yes (Death, Life-Threatening, Hospitalization, Other)
  Sender: FDA-Public Use
  Company Number: JP-BRISTOL-MYERS SQUIBB COMPANY-BMS-2020-107937

PATIENT
  Age: 57 Year
  Sex: Female
  Weight: 47.45 kg

DRUGS (15)
  1. OPDIVO [Suspect]
     Active Substance: NIVOLUMAB
     Indication: Malignant melanoma
     Dosage: 240 MILLIGRAM
     Route: 041
     Dates: start: 20200707, end: 20200929
  2. OPDIVO [Suspect]
     Active Substance: NIVOLUMAB
     Dosage: 80 MILLIGRAM
     Route: 041
     Dates: start: 20201013
  3. YERVOY [Suspect]
     Active Substance: IPILIMUMAB
     Indication: Malignant melanoma
     Dosage: 3 MILLIGRAM/KILOGRAM
     Route: 041
     Dates: start: 20201013
  4. PREDNISOLONE [Concomitant]
     Active Substance: PREDNISOLONE
     Indication: Pleural effusion
     Dosage: 30 MILLIGRAM
     Route: 065
     Dates: start: 20201027, end: 20201105
  5. PREDNISOLONE [Concomitant]
     Active Substance: PREDNISOLONE
     Indication: Pemphigoid
     Dosage: 25 UNK
     Route: 065
     Dates: start: 20201105, end: 20201113
  6. PREDNISOLONE [Concomitant]
     Active Substance: PREDNISOLONE
     Dosage: 20 MILLIGRAM
     Dates: start: 20201113
  7. PREDONINE [Concomitant]
     Active Substance: PREDNISOLONE
     Indication: Immune-mediated hepatic disorder
     Dosage: 40 MILLIGRAM
     Route: 065
     Dates: start: 20201118, end: 20201127
  8. PREDONINE [Concomitant]
     Active Substance: PREDNISOLONE
     Dosage: 40 MILLIGRAM
     Route: 065
     Dates: start: 20201130, end: 20201130
  9. MEROPENEM [Concomitant]
     Active Substance: MEROPENEM
     Indication: Disseminated intravascular coagulation
     Dosage: UNK
     Route: 065
     Dates: start: 20201118
  10. NONTHRON [Concomitant]
     Indication: Disseminated intravascular coagulation
     Dosage: UNK
     Route: 065
     Dates: start: 20201118, end: 20201121
  11. MENATETRENONE [Concomitant]
     Active Substance: MENATETRENONE
     Indication: Disseminated intravascular coagulation
     Dosage: UNK
     Route: 065
     Dates: start: 20201119, end: 20201123
  12. FRESH FROZEN PLASMA [Concomitant]
     Active Substance: HUMAN PLASMA
     Indication: Disseminated intravascular coagulation
     Dosage: UNK
     Route: 065
     Dates: start: 20201120
  13. DALTEPARIN SODIUM [Concomitant]
     Active Substance: DALTEPARIN SODIUM
     Indication: Disseminated intravascular coagulation
     Dosage: UNK
     Route: 065
     Dates: start: 20201118
  14. MYCOPHENOLATE MOFETIL [Concomitant]
     Active Substance: MYCOPHENOLATE MOFETIL
     Indication: Disseminated intravascular coagulation
     Dosage: 1500 MILLIGRAM
     Route: 065
     Dates: start: 20201130
  15. MYCOPHENOLATE MOFETIL [Concomitant]
     Active Substance: MYCOPHENOLATE MOFETIL
     Dosage: 500 MILLIGRAM
     Route: 065

REACTIONS (1)
  - Disseminated intravascular coagulation [Fatal]
